FAERS Safety Report 24217621 (Version 1)
Quarter: 2024Q3

REPORT INFORMATION
  Report Type: Spontaneous
  Country: GB (occurrence: GB)
  Receive Date: 20240816
  Receipt Date: 20240816
  Transmission Date: 20241016
  Serious: Yes (Disabling, Other)
  Sender: TEVA
  Company Number: None

PATIENT
  Age: 61 Year
  Sex: Female
  Weight: 62 kg

DRUGS (1)
  1. QUININE [Suspect]
     Active Substance: QUININE
     Indication: Muscle spasms
     Dosage: TEVA UK, AT NIGHT
     Route: 065

REACTIONS (1)
  - Myopathy toxic [Not Recovered/Not Resolved]

NARRATIVE: CASE EVENT DATE: 20240727
